FAERS Safety Report 10158330 (Version 8)
Quarter: 2014Q4

REPORT INFORMATION
  Report Type: Spontaneous
  Country: US (occurrence: US)
  Receive Date: 20140507
  Receipt Date: 20141126
  Transmission Date: 20150528
  Serious: Yes (Hospitalization)
  Sender: FDA-Public Use
  Company Number: US-ACTELION-A-NJ2014-98320

PATIENT
  Age: 68 Year
  Sex: Female

DRUGS (12)
  1. COQ10 [Concomitant]
     Active Substance: UBIDECARENONE
  2. LETAIRIS [Concomitant]
     Active Substance: AMBRISENTAN
     Dosage: 10 MG, UNK
  3. K-DUR [Concomitant]
     Active Substance: POTASSIUM CHLORIDE
  4. VELETRI [Suspect]
     Active Substance: EPOPROSTENOL
     Indication: PULMONARY ARTERIAL HYPERTENSION
     Dosage: 35 NG/KG, PER MIN
     Route: 042
     Dates: start: 20101122
  5. METOLAZONE. [Concomitant]
     Active Substance: METOLAZONE
  6. CALCITRIOL. [Concomitant]
     Active Substance: CALCITRIOL
  7. LOMOTIL [Concomitant]
     Active Substance: ATROPINE SULFATE\DIPHENOXYLATE HYDROCHLORIDE
  8. THYROID GLAND [Concomitant]
  9. NORCO [Concomitant]
     Active Substance: ACETAMINOPHEN\HYDROCODONE BITARTRATE
  10. ADCIRCA [Concomitant]
     Active Substance: TADALAFIL
     Dosage: 40 MG, UNK
  11. LASIX [Concomitant]
     Active Substance: FUROSEMIDE
  12. ALLOPURINOL. [Concomitant]
     Active Substance: ALLOPURINOL

REACTIONS (7)
  - Drug hypersensitivity [Unknown]
  - Sepsis [Recovered/Resolved]
  - Clostridium difficile infection [Unknown]
  - Staphylococcus test positive [Recovered/Resolved]
  - Culture positive [Recovered/Resolved]
  - Hypersensitivity [Unknown]
  - Catheter site infection [Recovered/Resolved]

NARRATIVE: CASE EVENT DATE: 20140418
